FAERS Safety Report 8116433-6 (Version None)
Quarter: 2011Q4

REPORT INFORMATION
  Report Type: 
  Country: None (occurrence: None)
  Receive Date: 20111227
  Receipt Date: 20110902
  Transmission Date: 20120403
  Serious: No
  Sender: FDA-Public Use
  Company Number: PHEH2011US03502

PATIENT
  Age: 58 Year
  Sex: Female

DRUGS (8)
  1. IBUPROFEN [Concomitant]
  2. BACLOFEN [Concomitant]
  3. LYRICA [Concomitant]
  4. ZOZTAVAX VACCINE () VIAL [Suspect]
     Dosage: 10 PK
  5. GILENYA [Suspect]
     Dosage: 0.5 MG, ONE CAPUSLE EVERDAY, ORAL
     Route: 048
  6. ZOLOFT [Concomitant]
  7. CRESTOR [Concomitant]
  8. NEXIUM	/01479302/ (ESOMEPRAZOLE MAGNESIUM) [Concomitant]

REACTIONS (3)
  - DRY EYE [None]
  - BLEPHAROSPASM [None]
  - VISION BLURRED [None]
